FAERS Safety Report 11120273 (Version 4)
Quarter: 2018Q1

REPORT INFORMATION
  Report Type: Spontaneous
  Country: US (occurrence: US)
  Receive Date: 20150518
  Receipt Date: 20180315
  Transmission Date: 20180508
  Serious: Yes (Hospitalization, Disabling)
  Sender: FDA-Public Use
  Company Number: US-ENDO PHARMACEUTICALS INC.-2015-000949

PATIENT
  Age: 64 Year
  Sex: Male
  Weight: 108.84 kg

DRUGS (3)
  1. LANTUS FLEX PEN [Concomitant]
     Indication: TYPE 2 DIABETES MELLITUS
     Dosage: UNK UNKNOWN, UNKNOWN
     Route: 065
     Dates: start: 1995
  2. MULTIVITAMIN [Concomitant]
     Active Substance: VITAMINS
     Indication: PRODUCT USED FOR UNKNOWN INDICATION
     Dosage: UNK UNKNOWN, UNKNOWN
     Route: 065
     Dates: start: 1987
  3. TESTIM [Suspect]
     Active Substance: TESTOSTERONE
     Indication: ANDROGEN REPLACEMENT THERAPY
     Dosage: 1%, 50 MG/5 G, 1 TUBE DAILY
     Route: 062
     Dates: start: 20090603, end: 20140624

REACTIONS (6)
  - Cataract [Unknown]
  - Cellulitis [Unknown]
  - Acute myocardial infarction [Not Recovered/Not Resolved]
  - Retinal vein occlusion [Not Recovered/Not Resolved]
  - Optic ischaemic neuropathy [Not Recovered/Not Resolved]
  - Optic ischaemic neuropathy [Not Recovered/Not Resolved]

NARRATIVE: CASE EVENT DATE: 20090907
